FAERS Safety Report 7083772-X (Version None)
Quarter: 2010Q4

REPORT INFORMATION
  Report Type: 
  Country: None (occurrence: None)
  Receive Date: 20101025
  Receipt Date: 20101013
  Transmission Date: 20110411
  Serious: Yes (Hospitalization, Other)
  Sender: FDA-Public Use
  Company Number: 107115

PATIENT
  Age: 34 Year
  Sex: Male

DRUGS (1)
  1. BUPRENORPHINE HCL [Suspect]

REACTIONS (6)
  - DRUG ABUSE [None]
  - ENTEROCOCCAL SEPSIS [None]
  - GRAFT INFECTION [None]
  - MEDICATION ERROR [None]
  - PENILE NECROSIS [None]
  - TRANSPLANT FAILURE [None]
